FAERS Safety Report 16924667 (Version 1)
Quarter: 2019Q4

REPORT INFORMATION
  Report Type: Spontaneous
  Country: US (occurrence: US)
  Receive Date: 20191015
  Receipt Date: 20191015
  Transmission Date: 20200122
  Serious: Yes (Death, Life-Threatening, Hospitalization)
  Sender: FDA-Public Use
  Company Number: None

PATIENT
  Age: 66 Year
  Sex: Female
  Weight: 60.75 kg

DRUGS (6)
  1. REDMONDS SALT [Concomitant]
  2. NINGXIA RED [Concomitant]
  3. ALBUTEROL. [Concomitant]
     Active Substance: ALBUTEROL
  4. SULFURZYME [Concomitant]
  5. VITAMIN B [Concomitant]
     Active Substance: VITAMIN B
  6. BREO ELLIPTA [Suspect]
     Active Substance: FLUTICASONE FUROATE\VILANTEROL TRIFENATATE
     Indication: ASTHMA
     Dosage: ?          QUANTITY:14 INHALATION(S);?
     Route: 055
     Dates: start: 20190829, end: 20190831

REACTIONS (3)
  - Asphyxia [None]
  - Near death experience [None]
  - Bronchospasm [None]

NARRATIVE: CASE EVENT DATE: 20190831
